FAERS Safety Report 10890230 (Version 2)
Quarter: 2015Q2

REPORT INFORMATION
  Report Type: Spontaneous
  Country: ES (occurrence: ES)
  Receive Date: 20150305
  Receipt Date: 20150417
  Transmission Date: 20150821
  Serious: Yes (Death, Hospitalization, Other)
  Sender: FDA-Public Use
  Company Number: ES-AMGEN-ESPSP2015019181

PATIENT
  Age: 59 Year
  Sex: Male
  Weight: 91.4 kg

DRUGS (18)
  1. IBUPROFENO [Concomitant]
     Active Substance: IBUPROFEN
     Dosage: 600
  2. XGEVA [Suspect]
     Active Substance: DENOSUMAB
     Indication: METASTASES TO BONE
     Dosage: 120 MG, Q4WK
     Route: 058
     Dates: start: 201409
  3. CRESTOR [Concomitant]
     Active Substance: ROSUVASTATIN CALCIUM
     Dosage: 10
  4. PREDNISONE. [Concomitant]
     Active Substance: PREDNISONE
  5. BOREA [Concomitant]
  6. SEGURIL [Concomitant]
     Active Substance: FUROSEMIDE
  7. CALCIUM [Concomitant]
     Active Substance: CALCIUM
  8. ARALTER PLUS [Concomitant]
     Dosage: 160/12.5
  9. TARGIN [Concomitant]
     Active Substance: NALOXONE HYDROCHLORIDE\OXYCODONE HYDROCHLORIDE
     Dosage: 10
  10. IRON [Concomitant]
     Active Substance: IRON
  11. OMEPRAZOL                          /00661201/ [Concomitant]
     Active Substance: OMEPRAZOLE
     Dosage: 20
  12. KILOR [Concomitant]
     Dosage: 80
  13. ABSTRAL [Concomitant]
     Active Substance: FENTANYL CITRATE
  14. SEBRANE                            /00048102/ [Concomitant]
     Dosage: 0.4
  15. OXINORM                            /00045603/ [Concomitant]
     Dosage: 5
  16. ENANTYUM [Concomitant]
     Active Substance: DEXKETOPROFEN TROMETAMOL
  17. ELIGARD [Concomitant]
     Active Substance: LEUPROLIDE ACETATE
  18. LYRICA [Concomitant]
     Active Substance: PREGABALIN
     Dosage: 75

REACTIONS (8)
  - Renal failure [Fatal]
  - Metastases to liver [Unknown]
  - Somnolence [Unknown]
  - Dehydration [Unknown]
  - General physical health deterioration [Unknown]
  - Urinary tract infection [Not Recovered/Not Resolved]
  - Hypotension [Unknown]
  - Sepsis [Fatal]

NARRATIVE: CASE EVENT DATE: 201411
